FAERS Safety Report 7125208 (Version 2)
Quarter: 2014Q3

REPORT INFORMATION
  Report Type: Spontaneous
  Country: US (occurrence: None)
  Receive Date: 20090910
  Receipt Date: 20140908
  Transmission Date: 20150326
  Serious: Yes (Hospitalization, Other)
  Sender: FDA-Public Use
  Company Number: 2009S1006967

PATIENT
  Age: 59 Year
  Sex: Female

DRUGS (5)
  1. KYTRIL (GRANISETRON HYDROCHLORIDE) [Concomitant]
  2. TEMODAR [Concomitant]
     Active Substance: TEMOZOLOMIDE
  3. PHOSPHO-SODA [Suspect]
     Active Substance: SODIUM PHOSPHATE, DIBASIC\SODIUM PHOSPHATE, MONOBASIC
     Indication: HYSTERECTOMY
     Dosage: TOTAL
     Route: 048
     Dates: start: 20080514, end: 20080514
  4. PHOSPHO-SODA [Suspect]
     Active Substance: SODIUM PHOSPHATE, DIBASIC\SODIUM PHOSPHATE, MONOBASIC
     Indication: SALPINGO-OOPHORECTOMY BILATERAL
     Dosage: TOTAL
     Route: 048
     Dates: start: 20080514, end: 20080514
  5. GOLYTELY [Suspect]
     Active Substance: POLYETHYLENE GLYCOL 3350\POTASSIUM CHLORIDE\SODIUM BICARBONATE\SODIUM CHLORIDE\SODIUM SULFATE ANHYDROUS

REACTIONS (9)
  - Blood pressure increased [None]
  - Procedural hypotension [None]
  - Renal tubular necrosis [None]
  - Haemoglobin decreased [None]
  - Hypotension [None]
  - Renal failure acute [None]
  - Nephropathy [None]
  - Acute phosphate nephropathy [None]
  - Renal failure chronic [None]

NARRATIVE: CASE EVENT DATE: 20080515
